FAERS Safety Report 13269314 (Version 6)
Quarter: 2017Q2

REPORT INFORMATION
  Report Type: Report from Study
  Country: US (occurrence: US)
  Receive Date: 20170224
  Receipt Date: 20170525
  Transmission Date: 20170830
  Serious: Yes (Hospitalization, Other)
  Sender: FDA-Public Use
  Company Number: US-ARIAD PHARMACEUTICALS, INC-2017US007584

PATIENT
  Age: 58 Year
  Sex: Female

DRUGS (4)
  1. ICLUSIG [Suspect]
     Active Substance: PONATINIB
     Dosage: 45 MG, QD
     Route: 048
  2. ICLUSIG [Suspect]
     Active Substance: PONATINIB
     Dosage: 45 MG, QD
     Route: 048
  3. ICLUSIG [Suspect]
     Active Substance: PONATINIB
     Indication: ACUTE LYMPHOCYTIC LEUKAEMIA
     Dosage: 45 MG, QD
     Route: 048
     Dates: start: 20170125
  4. ICLUSIG [Suspect]
     Active Substance: PONATINIB
     Dosage: 45 MG, QD
     Route: 048

REACTIONS (18)
  - Platelet count decreased [Unknown]
  - Constipation [Unknown]
  - Upper limb fracture [Unknown]
  - Neutrophil count abnormal [Unknown]
  - Pyrexia [Unknown]
  - Diarrhoea [Not Recovered/Not Resolved]
  - Anal incontinence [Unknown]
  - Stomatitis [Unknown]
  - Asthenia [Unknown]
  - Fatigue [Not Recovered/Not Resolved]
  - Stem cell transplant [Unknown]
  - Post procedural bile leak [Unknown]
  - White blood cell count decreased [Unknown]
  - Crying [Unknown]
  - Cholecystectomy [Unknown]
  - Fall [Unknown]
  - Hair growth abnormal [Unknown]
  - Depression [Unknown]

NARRATIVE: CASE EVENT DATE: 20170130
